FAERS Safety Report 9326911 (Version 2)
Quarter: 2013Q3

REPORT INFORMATION
  Report Type: Spontaneous
  Country: US (occurrence: US)
  Receive Date: 20130604
  Receipt Date: 20130807
  Transmission Date: 20140515
  Serious: No
  Sender: FDA-Public Use
  Company Number: US-AMGEN-USASP2013031874

PATIENT
  Age: 56 Year
  Sex: Female

DRUGS (2)
  1. ENBREL [Suspect]
     Indication: RHEUMATOID ARTHRITIS
     Dosage: 50 MG, ONCE A WEEK
     Route: 065
     Dates: start: 201304
  2. ENBREL [Suspect]
     Dosage: UNK
     Route: 065

REACTIONS (2)
  - Urticaria [Not Recovered/Not Resolved]
  - Herpes zoster [Recovered/Resolved]
